FAERS Safety Report 8846477 (Version 1)
Quarter: 2012Q4

REPORT INFORMATION
  Report Type: 
  Country: TW (occurrence: TW)
  Receive Date: 20121017
  Receipt Date: 20121017
  Transmission Date: 20130627
  Serious: Yes (Death, Hospitalization, Other)
  Sender: FDA-Public Use
  Company Number: TW-BAYER-2012-108081

PATIENT
  Age: 40 Year
  Sex: Male

DRUGS (2)
  1. AVELOX [Suspect]
     Indication: TUBERCULOSIS
  2. PYRAZINAMIDE [Suspect]
     Indication: TUBERCULOSIS

REACTIONS (4)
  - Hepatitis fulminant [Fatal]
  - Hepatic failure [Fatal]
  - Altered state of consciousness [None]
  - Jaundice [Fatal]
